FAERS Safety Report 5081934-4 (Version None)
Quarter: 2006Q3

REPORT INFORMATION
  Report Type: 
  Country: None (occurrence: None)
  Receive Date: 20060807
  Receipt Date: 20060711
  Transmission Date: 20061208
  Serious: Yes (Other)
  Sender: FDA-Public Use
  Company Number: 2006BH011790

PATIENT
  Age: 2 Year
  Sex: Male
  Weight: 12 kg

DRUGS (8)
  1. ADVATE (OCTOCOG ALFA) [Suspect]
     Indication: FACTOR VIII DEFICIENCY
     Dosage: SEE IMAGE
     Route: 042
     Dates: start: 20050207, end: 20060507
  2. ADVATE (OCTOCOG ALFA) [Suspect]
     Indication: FACTOR VIII DEFICIENCY
     Dosage: SEE IMAGE
     Route: 042
     Dates: start: 20060508, end: 20060619
  3. ADVATE (OCTOCOG ALFA) [Suspect]
  4. ADVATE (OCTOCOG ALFA) [Suspect]
  5. ADVATE (OCTOCOG ALFA) [Suspect]
  6. ADVATE (OCTOCOG ALFA) [Suspect]
  7. ADVATE (OCTOCOG ALFA) [Suspect]
  8. ADVATE (OCTOCOG ALFA) [Suspect]

REACTIONS (2)
  - FACTOR VIII INHIBITION [None]
  - HAEMARTHROSIS [None]
